FAERS Safety Report 9919367 (Version 1)
Quarter: 2014Q1

REPORT INFORMATION
  Report Type: Spontaneous
  Country: US (occurrence: US)
  Receive Date: 20140224
  Receipt Date: 20140224
  Transmission Date: 20141002
  Serious: Yes (Hospitalization, Other)
  Sender: FDA-Public Use
  Company Number: US-ROXANE LABORATORIES, INC.-2014-RO-00262RO

PATIENT
  Sex: Female

DRUGS (8)
  1. MORPHINE [Suspect]
     Indication: BACK PAIN
     Dosage: 180 MG
     Route: 048
  2. MORPHINE [Suspect]
     Indication: BACK PAIN
     Dosage: 180 MG
     Route: 048
  3. AMLODIPINE [Suspect]
     Indication: HYPERTENSION
     Route: 048
  4. TRIAMTERENE HCTZ [Suspect]
     Indication: HYPERTENSION
     Route: 048
  5. ASPIRIN [Concomitant]
     Route: 065
  6. CELEXA [Concomitant]
     Route: 065
  7. SELMA [Concomitant]
     Route: 065
  8. FIORICET [Concomitant]
     Indication: MIGRAINE
     Route: 065

REACTIONS (2)
  - Cerebrovascular accident [Unknown]
  - Blood pressure increased [Unknown]
